FAERS Safety Report 25358728 (Version 1)
Quarter: 2025Q2

REPORT INFORMATION
  Report Type: Spontaneous
  Country: US (occurrence: US)
  Receive Date: 20250526
  Receipt Date: 20250526
  Transmission Date: 20250717
  Serious: No
  Sender: GLAND PHARMA LTD
  Company Number: US-GLANDPHARMA-US-2025GLNSPO01251

PATIENT

DRUGS (2)
  1. CARBOPLATIN [Suspect]
     Active Substance: CARBOPLATIN
     Indication: Chemotherapy
     Route: 065
  2. TAXOL [Suspect]
     Active Substance: PACLITAXEL
     Indication: Chemotherapy
     Route: 065

REACTIONS (4)
  - Onychalgia [Unknown]
  - Pain in extremity [Unknown]
  - Feeding disorder [Unknown]
  - Nausea [Unknown]
